FAERS Safety Report 9855694 (Version 1)
Quarter: 2014Q1

REPORT INFORMATION
  Report Type: Spontaneous
  Country: US (occurrence: None)
  Receive Date: 20140129
  Receipt Date: 20140129
  Transmission Date: 20141002
  Serious: Yes (Hospitalization)
  Sender: FDA-Public Use
  Company Number: None

PATIENT
  Age: 69 Year
  Sex: Male
  Weight: 130.18 kg

DRUGS (1)
  1. ANDROGEL [Suspect]
     Indication: ASTHENIA
     Dosage: ONCE DAILY APPLIED TO A SURFACNE USUALLY THE SKIN
     Dates: start: 20101001, end: 20110223

REACTIONS (3)
  - Thrombosis [None]
  - Renal disorder [None]
  - Spleen disorder [None]
